FAERS Safety Report 10243154 (Version 1)
Quarter: 2014Q2

REPORT INFORMATION
  Report Type: Spontaneous
  Country: US (occurrence: None)
  Receive Date: 20140616
  Receipt Date: 20140616
  Transmission Date: 20141212
  Serious: Yes (Other)
  Sender: FDA-Public Use
  Company Number: None

PATIENT
  Age: 36 Year
  Sex: Female
  Weight: 76.66 kg

DRUGS (5)
  1. ATORVASTATIN/LIPITOR 20 MG [Suspect]
     Indication: HYPERLIPIDAEMIA
     Route: 048
     Dates: start: 20140415, end: 20140607
  2. ESCITALOPRAM [Concomitant]
  3. NUVARING [Concomitant]
  4. PHENTERMINE [Concomitant]
  5. ASPIRIN [Concomitant]

REACTIONS (5)
  - Sunburn [None]
  - Chemical injury [None]
  - Blister [None]
  - Skin exfoliation [None]
  - Haemorrhage [None]
